FAERS Safety Report 4715365-0 (Version None)
Quarter: 2005Q3

REPORT INFORMATION
  Report Type: 
  Country: None (occurrence: None)
  Receive Date: 20050715
  Receipt Date: 20050418
  Transmission Date: 20060218
  Serious: Yes (Hospitalization)
  Sender: FDA-Public Use
  Company Number: US-MERCK-0504USA03452

PATIENT
  Age: 71 Year
  Sex: Male
  Weight: 86 kg

DRUGS (41)
  1. VIOXX [Suspect]
     Indication: BACK PAIN
     Route: 048
     Dates: start: 19990101, end: 20040801
  2. VIOXX [Suspect]
     Indication: OSTEOARTHRITIS
     Route: 048
     Dates: start: 19990101, end: 20040801
  3. PAXIL [Concomitant]
     Indication: DEPRESSION
     Route: 048
     Dates: start: 20040101
  4. ASPIRIN [Concomitant]
     Indication: PROPHYLAXIS
     Route: 048
     Dates: start: 19940101
  5. PLAVIX [Concomitant]
     Indication: MYOCARDIAL INFARCTION
     Route: 048
     Dates: start: 19991101
  6. LIPITOR [Concomitant]
     Indication: BLOOD CHOLESTEROL INCREASED
     Route: 048
     Dates: start: 20010601, end: 20021201
  7. ZOCOR [Concomitant]
     Indication: BLOOD CHOLESTEROL INCREASED
     Route: 048
     Dates: start: 19940101, end: 19990101
  8. LESCOL [Concomitant]
     Indication: BLOOD CHOLESTEROL INCREASED
     Route: 048
     Dates: start: 19940101
  9. ADVIL [Concomitant]
     Indication: BACK PAIN
     Route: 048
     Dates: start: 19840101
  10. ADVIL [Concomitant]
     Indication: ARTHRALGIA
     Route: 048
     Dates: start: 19840101
  11. NAPROXEN [Concomitant]
     Indication: BACK PAIN
     Route: 048
     Dates: start: 19930101
  12. NAPROXEN [Concomitant]
     Indication: ARTHRALGIA
     Route: 048
     Dates: start: 19930101
  13. MOBIC [Concomitant]
     Indication: BACK PAIN
     Route: 048
     Dates: start: 20021001, end: 20041001
  14. MOBIC [Concomitant]
     Indication: ARTHRALGIA
     Route: 048
     Dates: start: 20021001, end: 20041001
  15. CELEBREX [Concomitant]
     Indication: BACK PAIN
     Route: 048
     Dates: start: 20020301, end: 20020501
  16. CELEBREX [Concomitant]
     Indication: ARTHRALGIA
     Route: 048
     Dates: start: 20020301, end: 20020501
  17. ARTHROTEC [Concomitant]
     Indication: BACK PAIN
     Route: 048
     Dates: start: 20021101, end: 20021101
  18. ARTHROTEC [Concomitant]
     Indication: ARTHRALGIA
     Route: 048
     Dates: start: 20021101, end: 20021101
  19. ROXICET [Concomitant]
     Indication: BACK PAIN
     Route: 048
     Dates: start: 20021101, end: 20021101
  20. ROXICET [Concomitant]
     Indication: ARTHRALGIA
     Route: 048
     Dates: start: 20021101, end: 20021101
  21. LODINE [Concomitant]
     Indication: BACK PAIN
     Route: 048
     Dates: start: 19990101, end: 19990101
  22. LODINE [Concomitant]
     Indication: ARTHRALGIA
     Route: 048
     Dates: start: 19990101, end: 19990101
  23. HYDRODIURIL [Concomitant]
     Indication: HYPERTENSION
     Route: 048
     Dates: start: 20031001, end: 20031001
  24. IRBESARTAN [Concomitant]
     Indication: HYPERTENSION
     Route: 048
     Dates: start: 20021101, end: 20040901
  25. POTASSIUM CHLORIDE [Concomitant]
     Indication: HYPERTENSION
     Route: 048
     Dates: start: 20000501
  26. LISINOPRIL [Concomitant]
     Indication: HYPERTENSION
     Route: 048
     Dates: start: 20010101, end: 20020101
  27. TOPROL-XL [Concomitant]
     Indication: HYPERTENSION
     Route: 048
     Dates: start: 20000501, end: 20020501
  28. COREG [Concomitant]
     Indication: HYPERTENSION
     Route: 048
     Dates: start: 20020501
  29. METOPROLOL [Concomitant]
     Indication: HYPERTENSION
     Route: 048
     Dates: start: 19991201, end: 20021101
  30. LASIX [Concomitant]
     Indication: HYPERTENSION
     Route: 048
     Dates: start: 19950101
  31. FUROSEMIDE [Concomitant]
     Indication: HYPERTENSION
     Route: 048
     Dates: start: 20000301, end: 20021101
  32. ACCUPRIL [Concomitant]
     Indication: HYPERTENSION
     Route: 048
     Dates: start: 20030201
  33. COZAAR [Concomitant]
     Indication: HYPERTENSION
     Route: 048
     Dates: start: 20000501
  34. AVAPRO [Concomitant]
     Indication: HYPERTENSION
     Route: 048
     Dates: start: 20020501
  35. AVAPRO [Concomitant]
     Route: 048
     Dates: start: 20020501
  36. AMBIEN [Concomitant]
     Route: 065
  37. TESSALON [Concomitant]
     Route: 065
  38. SYNTHROID [Concomitant]
     Route: 065
  39. FLOVENT [Concomitant]
     Route: 065
  40. SEREVENT [Concomitant]
     Route: 065
  41. CEFTIN [Concomitant]
     Route: 065

REACTIONS (20)
  - ABDOMINAL PAIN UPPER [None]
  - ANAEMIA [None]
  - ARTHROPATHY [None]
  - BACK PAIN [None]
  - CHEST PAIN [None]
  - DEPRESSION [None]
  - DIVERTICULITIS [None]
  - DYSPNOEA EXERTIONAL [None]
  - GOUT [None]
  - HYPERTENSION [None]
  - HYPERTHYROIDISM [None]
  - ISCHAEMIC CARDIOMYOPATHY [None]
  - MYOCARDIAL INFARCTION [None]
  - MYOCARDIAL ISCHAEMIA [None]
  - PAIN IN EXTREMITY [None]
  - PLATELET AGGREGATION INCREASED [None]
  - RENAL FAILURE [None]
  - SLEEP APNOEA SYNDROME [None]
  - THYROID DISORDER [None]
  - VENTRICULAR FIBRILLATION [None]
